FAERS Safety Report 8902786 (Version 2)
Quarter: 2012Q4

REPORT INFORMATION
  Report Type: 
  Country: JP (occurrence: JP)
  Receive Date: 20121112
  Receipt Date: 20121221
  Transmission Date: 20130627
  Serious: Yes (Hospitalization)
  Sender: FDA-Public Use
  Company Number: JP-009507513-1211JPN002813

PATIENT
  Age: 58 Year
  Sex: Male
  Weight: 75 kg

DRUGS (9)
  1. PEGINTRON [Suspect]
     Indication: CHRONIC HEPATITIS C
     Dosage: 1.5 Microgram per kilogram, qw
     Route: 058
     Dates: start: 20120821
  2. REBETOL [Suspect]
     Indication: CHRONIC HEPATITIS C
     Dosage: 800 mg, qd
     Route: 048
     Dates: start: 20120821, end: 20120910
  3. REBETOL [Suspect]
     Dosage: 400 mg, qd
     Route: 048
     Dates: start: 20120911
  4. TELAVIC [Suspect]
     Indication: CHRONIC HEPATITIS C
     Dosage: 2250 mg, qd
     Route: 048
     Dates: start: 20120821, end: 20120924
  5. TELAVIC [Suspect]
     Dosage: 1500 mg, qd
     Route: 048
     Dates: start: 20120925
  6. TELAVIC [Suspect]
     Dosage: 2250mg,qd
     Route: 048
     Dates: end: 20120925
  7. TELAVIC [Suspect]
     Dosage: 1500mg,qd
     Route: 048
     Dates: start: 20120926
  8. AMLODIN (AMLODIPINE BESYLATE) [Concomitant]
     Indication: HYPERTENSION
     Dosage: 2.5 mg, qd
     Route: 048
  9. BLOPRESS [Concomitant]
     Indication: HYPERTENSION
     Dosage: 4 mg, qd (Formulation: POR)
     Route: 048

REACTIONS (3)
  - Malaise [Recovering/Resolving]
  - Diarrhoea [Recovering/Resolving]
  - Nausea [Recovered/Resolved]
